FAERS Safety Report 8042421-4 (Version None)
Quarter: 2012Q1

REPORT INFORMATION
  Report Type: 
  Country: None (occurrence: None)
  Receive Date: 20120112
  Receipt Date: 20111102
  Transmission Date: 20120608
  Serious: No
  Sender: FDA-Public Use
  Company Number: US-BAYER-2012-003311

PATIENT
  Sex: Male

DRUGS (9)
  1. TAMSULOSIN HCL [Concomitant]
  2. MULTI-VITAMINS [Concomitant]
  3. STAXYN [Suspect]
     Indication: ERECTILE DYSFUNCTION
     Dosage: 10 MG, UNK
     Route: 048
  4. TENATOENLOL [Concomitant]
  5. ASPIRIN [Concomitant]
  6. FOIL [Concomitant]
  7. DIOVAN [Concomitant]
  8. AVODART [Concomitant]
  9. FISH OIL [Concomitant]

REACTIONS (1)
  - ERECTILE DYSFUNCTION [None]
